FAERS Safety Report 7014130-1 (Version None)
Quarter: 2010Q3

REPORT INFORMATION
  Report Type: 
  Country: None (occurrence: None)
  Receive Date: 20100927
  Receipt Date: 20100920
  Transmission Date: 20110219
  Serious: Yes (Other)
  Sender: FDA-Public Use
  Company Number: US-RB-015483-10

PATIENT
  Sex: Female

DRUGS (1)
  1. SUBOXONE [Suspect]
     Indication: PRODUCT USED FOR UNKNOWN INDICATION
     Dosage: UNKNOWN DOSING DETAILS
     Route: 065

REACTIONS (4)
  - ANTIBODY TEST ABNORMAL [None]
  - INTENTIONAL DRUG MISUSE [None]
  - POST POLIO SYNDROME [None]
  - T-LYMPHOCYTE COUNT INCREASED [None]
